FAERS Safety Report 9147863 (Version 1)
Quarter: 2013Q1

REPORT INFORMATION
  Report Type: Spontaneous
  Country: US (occurrence: US)
  Receive Date: 20130307
  Receipt Date: 20130307
  Transmission Date: 20140127
  Serious: Yes (Other)
  Sender: FDA-Public Use
  Company Number: CHPA2013US004058

PATIENT
  Age: 81 Year
  Sex: Female

DRUGS (2)
  1. PREVACID 24HR 15MG [Suspect]
     Indication: GASTROOESOPHAGEAL REFLUX DISEASE
     Dosage: 15 MG, QD
     Route: 048
  2. PREVACID 24HR 15MG [Suspect]
     Dosage: 15 MG, QD
     Route: 048

REACTIONS (5)
  - Atrial fibrillation [Unknown]
  - Pain [Unknown]
  - Arthritis [Unknown]
  - Malaise [Unknown]
  - Drug ineffective for unapproved indication [Unknown]
